FAERS Safety Report 20074623 (Version 2)
Quarter: 2021Q4

REPORT INFORMATION
  Report Type: Spontaneous
  Country: GB (occurrence: GB)
  Receive Date: 20211116
  Receipt Date: 20211130
  Transmission Date: 20220303
  Serious: Yes (Other)
  Sender: FDA-Public Use
  Company Number: None

PATIENT
  Sex: Female

DRUGS (3)
  1. ANAGRELIDE [Suspect]
     Active Substance: ANAGRELIDE
     Indication: Essential thrombocythaemia
     Dosage: UNKNOWN
     Route: 065
  2. HYDROXYUREA [Suspect]
     Active Substance: HYDROXYUREA
     Indication: Product used for unknown indication
     Dosage: UNKNOWN
     Route: 065
  3. PEGASYS [Concomitant]
     Active Substance: PEGINTERFERON ALFA-2A
     Indication: Product used for unknown indication
     Dates: start: 20211112

REACTIONS (7)
  - Renal impairment [Unknown]
  - Pain in extremity [Unknown]
  - Quality of life decreased [Unknown]
  - Skin ulcer [Recovering/Resolving]
  - Pain of skin [Unknown]
  - Impaired healing [Unknown]
  - Arthropod sting [Unknown]
